FAERS Safety Report 13929099 (Version 2)
Quarter: 2017Q3

REPORT INFORMATION
  Report Type: Spontaneous
  Country: DE (occurrence: DE)
  Receive Date: 20170901
  Receipt Date: 20170906
  Transmission Date: 20171127
  Serious: Yes (Other)
  Sender: FDA-Public Use
  Company Number: DE-TORRENT-00007008

PATIENT
  Age: 55 Year
  Sex: Female

DRUGS (2)
  1. TRAMADOL. [Suspect]
     Active Substance: TRAMADOL
  2. DULOXETINE HYDROCHLORIDE. [Interacting]
     Active Substance: DULOXETINE HYDROCHLORIDE

REACTIONS (5)
  - Serotonin syndrome [Recovered/Resolved]
  - Tachycardia [Unknown]
  - Drug level increased [Recovered/Resolved]
  - Psychomotor hyperactivity [Unknown]
  - Drug interaction [Unknown]
